FAERS Safety Report 25435898 (Version 2)
Quarter: 2025Q3

REPORT INFORMATION
  Report Type: Other
  Country: KR (occurrence: KR)
  Receive Date: 20250613
  Receipt Date: 20250923
  Transmission Date: 20251021
  Serious: Yes (Hospitalization)
  Sender: AIRGAS
  Company Number: KR-ALSI-2025000139

PATIENT
  Age: 24 Year
  Sex: Male

DRUGS (1)
  1. NITROUS OXIDE [Suspect]
     Active Substance: NITROUS OXIDE
     Indication: Drug abuse

REACTIONS (2)
  - Cerebral venous thrombosis [Recovering/Resolving]
  - Pulmonary embolism [Recovering/Resolving]
